FAERS Safety Report 6884685-6 (Version None)
Quarter: 2010Q3

REPORT INFORMATION
  Report Type: 
  Country: None (occurrence: None)
  Receive Date: 20100729
  Receipt Date: 20070824
  Transmission Date: 20110219
  Serious: Yes (Hospitalization, Other)
  Sender: FDA-Public Use
  Company Number: US-PFIZER INC-2007063414

PATIENT
  Sex: Male

DRUGS (2)
  1. CELEBREX [Suspect]
     Indication: PAIN MANAGEMENT
     Dates: start: 20010326
  2. CELEBREX [Suspect]
     Indication: ARTHRITIS

REACTIONS (4)
  - DEPRESSION [None]
  - FOOT FRACTURE [None]
  - JOINT INJURY [None]
  - MYOCARDIAL INFARCTION [None]
